FAERS Safety Report 16023015 (Version 1)
Quarter: 2019Q1

REPORT INFORMATION
  Report Type: Other
  Country: US (occurrence: US)
  Receive Date: 20190301
  Receipt Date: 20190301
  Transmission Date: 20190418
  Serious: Yes (Hospitalization)
  Sender: FDA-Public Use
  Company Number: US-BIOVITRUM-2019US0406

PATIENT
  Sex: Female

DRUGS (1)
  1. KINERET [Suspect]
     Active Substance: ANAKINRA
     Route: 058
     Dates: start: 20190129, end: 20190217

REACTIONS (2)
  - Neoplasm malignant [Unknown]
  - White blood cell count increased [Unknown]
